FAERS Safety Report 7011898-5 (Version None)
Quarter: 2010Q3

REPORT INFORMATION
  Report Type: 
  Country: None (occurrence: None)
  Receive Date: 20100924
  Receipt Date: 20100915
  Transmission Date: 20110219
  Serious: Yes (Hospitalization)
  Sender: FDA-Public Use
  Company Number: NL-BIOGENIDEC-2010BI031594

PATIENT
  Age: 54 Year
  Sex: Female

DRUGS (4)
  1. TYSABRI [Suspect]
     Indication: MULTIPLE SCLEROSIS
     Route: 042
     Dates: start: 20070301, end: 20100801
  2. DIOVAN [Concomitant]
  3. OMNIC [Concomitant]
  4. BACLOFEN [Concomitant]

REACTIONS (1)
  - SUBARACHNOID HAEMORRHAGE [None]
